FAERS Safety Report 11165374 (Version 1)
Quarter: 2015Q2

REPORT INFORMATION
  Report Type: Spontaneous
  Country: US (occurrence: None)
  Receive Date: 20150603
  Receipt Date: 20150603
  Transmission Date: 20150821
  Serious: No
  Sender: FDA-Public Use
  Company Number: None

PATIENT
  Age: 30 Year
  Sex: Male
  Weight: 76.2 kg

DRUGS (3)
  1. CIPROFLOXACIN. [Suspect]
     Active Substance: CIPROFLOXACIN
     Indication: TOOTH INFECTION
     Dosage: 20
     Route: 048
  2. HYOSCYAMINE SULFATE (LEVSIN) [Concomitant]
  3. NEXIUM [Concomitant]
     Active Substance: ESOMEPRAZOLE MAGNESIUM

REACTIONS (5)
  - Myalgia [None]
  - Arthralgia [None]
  - Dizziness [None]
  - Feeling abnormal [None]
  - Sensory loss [None]

NARRATIVE: CASE EVENT DATE: 20150530
